FAERS Safety Report 11057079 (Version 1)
Quarter: 2015Q2

REPORT INFORMATION
  Report Type: Spontaneous
  Country: IT (occurrence: IT)
  Receive Date: 20150422
  Receipt Date: 20150422
  Transmission Date: 20150821
  Serious: Yes (Hospitalization)
  Sender: FDA-Public Use
  Company Number: IT-PFIZER INC-2015137325

PATIENT
  Age: 29 Year
  Sex: Female

DRUGS (6)
  1. ETHINYL ESTRADIOL/DROSPIRENONE [Interacting]
     Active Substance: DROSPIRENONE\ETHINYL ESTRADIOL
     Indication: ORAL CONTRACEPTION
     Dosage: 0.03MG/3 MG, PER DAY
     Route: 048
  2. CLOZAPINE. [Interacting]
     Active Substance: CLOZAPINE
     Dosage: 225 MG, DAILY
  3. MICONAZOLE [Interacting]
     Active Substance: MICONAZOLE
     Indication: ORAL CANDIDIASIS
     Dosage: GEL 2% 20 MG, 2X/DAY
     Route: 048
  4. CLOZAPINE. [Interacting]
     Active Substance: CLOZAPINE
     Indication: PSYCHOTIC DISORDER
     Dosage: 25 MG, DAILY
     Route: 048
  5. ARIPIPRAZOLE. [Concomitant]
     Active Substance: ARIPIPRAZOLE
     Indication: PSYCHOTIC DISORDER
     Dosage: 30 MG, DAILY
  6. FLUCONAZOLE. [Suspect]
     Active Substance: FLUCONAZOLE
     Indication: ORAL CANDIDIASIS
     Dosage: 100 MG, DAILY
     Route: 048

REACTIONS (6)
  - Pericarditis [Recovered/Resolved]
  - Drug interaction [Recovered/Resolved]
  - Vomiting [None]
  - Eosinophilia [Recovered/Resolved]
  - Nausea [None]
  - Drug level increased [Recovered/Resolved]
